FAERS Safety Report 5325802-9 (Version None)
Quarter: 2007Q2

REPORT INFORMATION
  Report Type: 
  Country: None (occurrence: None)
  Receive Date: 20070510
  Receipt Date: 20070430
  Transmission Date: 20071010
  Serious: Yes (Other)
  Sender: FDA-Public Use
  Company Number: GXKR2007GB03922

PATIENT
  Age: 22 Year
  Sex: Female

DRUGS (2)
  1. CHLORPHENIRAMINE(NGX) ( CHLORPHENIRAMINE) UNKNOWN [Suspect]
     Indication: PRURITUS
     Dosage: 4 MG
  2. FERROUS SULPHATE (FERROUS SULFATE) [Concomitant]

REACTIONS (2)
  - DRUG EXPOSURE DURING PREGNANCY [None]
  - STILLBIRTH [None]
